FAERS Safety Report 8009635-0 (Version None)
Quarter: 2011Q4

REPORT INFORMATION
  Report Type: 
  Country: None (occurrence: None)
  Receive Date: 20111228
  Receipt Date: 20111219
  Transmission Date: 20120403
  Serious: Yes (Hospitalization)
  Sender: FDA-Public Use
  Company Number: US-BIOGENIDEC-2011BI046645

PATIENT
  Sex: Male

DRUGS (3)
  1. AVONEX [Suspect]
  2. AVONEX [Suspect]
     Route: 030
     Dates: start: 19990501, end: 20030801
  3. AVONEX [Suspect]
     Indication: MULTIPLE SCLEROSIS
     Route: 030
     Dates: start: 20030801

REACTIONS (1)
  - AORTIC ANEURYSM [None]
